FAERS Safety Report 7055594-7 (Version None)
Quarter: 2010Q4

REPORT INFORMATION
  Report Type: 
  Country: None (occurrence: None)
  Receive Date: 20101021
  Receipt Date: 20101011
  Transmission Date: 20110411
  Serious: Yes (Death, Hospitalization)
  Sender: FDA-Public Use
  Company Number: US-BAXTER-2010BH024478

PATIENT
  Age: 28 Year
  Sex: Female

DRUGS (4)
  1. DIANEAL [Suspect]
     Indication: PERITONEAL DIALYSIS
     Route: 033
     Dates: end: 20100827
  2. DIANEAL [Suspect]
     Indication: PERITONEAL DIALYSIS
     Route: 033
     Dates: end: 20100827
  3. DIANEAL [Suspect]
     Indication: PERITONEAL DIALYSIS
     Route: 033
     Dates: end: 20100827
  4. EXTRANEAL [Suspect]
     Indication: PERITONEAL DIALYSIS
     Route: 033
     Dates: end: 20100827

REACTIONS (5)
  - ABDOMINAL HERNIA [None]
  - ABDOMINAL PAIN [None]
  - ABSCESS [None]
  - ASPIRATION [None]
  - CARDIAC ARREST [None]
